FAERS Safety Report 4412536-8 (Version None)
Quarter: 2004Q2

REPORT INFORMATION
  Report Type: 
  Country: None (occurrence: None)
  Receive Date: 20040630
  Receipt Date: 20040406
  Transmission Date: 20050107
  Serious: No
  Sender: FDA-Public Use
  Company Number: 04P-163-0256060-00

PATIENT
  Age: 73 Year
  Sex: Female

DRUGS (11)
  1. HUMIRA [Suspect]
     Indication: RHEUMATOID ARTHRITIS
     Dosage: 40 MG,1 IN 2 WK, SUBCUTANEOUS
     Route: 058
     Dates: start: 20030101, end: 20040321
  2. SECTROL [Concomitant]
  3. FOSINOPRIL SODIUM [Concomitant]
  4. PAROXETINE HYDROCLORIDE [Concomitant]
  5. TOCOPHEROL CONCENTRATE CAP [Concomitant]
  6. ASCORBIC ACID [Concomitant]
  7. MAGNESIUM [Concomitant]
  8. ASPIRIN [Concomitant]
  9. PROPACET 100 [Concomitant]
  10. PANTOPRAZOLE [Concomitant]
  11. ZOCOR [Concomitant]

REACTIONS (1)
  - BRONCHITIS [None]
